FAERS Safety Report 7543036-4 (Version None)
Quarter: 2011Q2

REPORT INFORMATION
  Report Type: 
  Country: None (occurrence: None)
  Receive Date: 20110613
  Receipt Date: 20110608
  Transmission Date: 20111010
  Serious: Yes (Death, Other)
  Sender: FDA-Public Use
  Company Number: PHHY2011FR49661

PATIENT
  Sex: Male

DRUGS (5)
  1. REQUIP [Suspect]
     Indication: PARKINSON'S DISEASE
     Dosage: 1 DF, QD
     Route: 048
     Dates: end: 20110417
  2. AZILECT [Suspect]
     Indication: PARKINSON'S DISEASE
     Dosage: 1 MG, QD
     Dates: start: 20100717
  3. NEUPRO [Suspect]
     Dosage: 4 MG, PER 24 HRS
     Route: 062
     Dates: start: 20110418
  4. STALEVO 100 [Suspect]
     Indication: PARKINSON'S DISEASE
     Dosage: 200/150/37.5 MG QD
     Route: 048
     Dates: start: 20050604
  5. SINEMET [Suspect]
     Indication: PARKINSON'S DISEASE
     Dosage: 1 DF, QD
     Dates: start: 20061228

REACTIONS (3)
  - ON AND OFF PHENOMENON [None]
  - CHEST PAIN [None]
  - DEATH [None]
